FAERS Safety Report 8863359 (Version 1)
Quarter: 2012Q4

REPORT INFORMATION
  Report Type: 
  Country: CN (occurrence: CN)
  Receive Date: 20121025
  Receipt Date: 20121025
  Transmission Date: 20130627
  Serious: Yes (Hospitalization)
  Sender: FDA-Public Use
  Company Number: CN-GLAXOSMITHKLINE-B0839968A

PATIENT
  Age: 39 Year
  Sex: Female
  Weight: 52 kg

DRUGS (1)
  1. TOPOTECAN HYDROCHLORIDE [Suspect]
     Indication: METASTASIS
     Dosage: 2MG Per day
     Route: 042
     Dates: start: 20110522, end: 20110523

REACTIONS (4)
  - Intestinal obstruction [Recovering/Resolving]
  - Nausea [Recovering/Resolving]
  - Vomiting [Recovering/Resolving]
  - Abdominal pain [Recovering/Resolving]
